FAERS Safety Report 7103864-6 (Version None)
Quarter: 2010Q4

REPORT INFORMATION
  Report Type: 
  Country: None (occurrence: None)
  Receive Date: 20101115
  Receipt Date: 20101101
  Transmission Date: 20110411
  Serious: Yes (Hospitalization)
  Sender: FDA-Public Use
  Company Number: PHHO2010US16329

PATIENT
  Sex: Male
  Weight: 100 kg

DRUGS (3)
  1. AFINITOR [Suspect]
     Indication: NEOPLASM
     Dosage: 30 MG D1, 8, 15
     Route: 048
     Dates: start: 20100719, end: 20101012
  2. CARBOPLATIN [Suspect]
     Indication: NEOPLASM
     Dosage: UNK
     Dates: start: 20100719, end: 20101012
  3. PACLITAXEL [Suspect]
     Indication: NEOPLASM
     Dosage: 200 MG/ M2
     Dates: start: 20100719, end: 20101012

REACTIONS (8)
  - DEEP VEIN THROMBOSIS [None]
  - DYSPNOEA [None]
  - HYPONATRAEMIA [None]
  - HYPOXIA [None]
  - NEUROPATHY PERIPHERAL [None]
  - PNEUMONIA [None]
  - PNEUMONITIS [None]
  - PULMONARY EMBOLISM [None]
